FAERS Safety Report 9612425 (Version 3)
Quarter: 2013Q4

REPORT INFORMATION
  Report Type: Spontaneous
  Country: US (occurrence: US)
  Receive Date: 20131010
  Receipt Date: 20131206
  Transmission Date: 20140711
  Serious: Yes (Other)
  Sender: FDA-Public Use
  Company Number: US-PFIZER INC-2013289430

PATIENT
  Sex: Female

DRUGS (2)
  1. NEURONTIN [Suspect]
     Indication: NEURALGIA
     Dosage: 800 MG, UNK
  2. NEURONTIN [Suspect]
     Dosage: 300 MG, UNK

REACTIONS (2)
  - Neoplasm malignant [Unknown]
  - Malignant melanoma [Unknown]
